FAERS Safety Report 5382697-5 (Version None)
Quarter: 2007Q3

REPORT INFORMATION
  Report Type: 
  Country: None (occurrence: None)
  Receive Date: 20070702
  Receipt Date: 20070314
  Transmission Date: 20080115
  Serious: No
  Sender: FDA-Public Use
  Company Number: 2007PV031714

PATIENT
  Age: 64 Year
  Sex: Female

DRUGS (2)
  1. SYMLIN [Suspect]
     Indication: TYPE 1 DIABETES MELLITUS
     Dosage: 20 MCG;TID;SC, 10 MCG;TID;SC
     Route: 058
     Dates: start: 20061101, end: 20061101
  2. SYMLIN [Suspect]
     Indication: TYPE 1 DIABETES MELLITUS
     Dosage: 20 MCG;TID;SC, 10 MCG;TID;SC
     Route: 058
     Dates: start: 20061101

REACTIONS (1)
  - FLATULENCE [None]
